FAERS Safety Report 6243168-7 (Version None)
Quarter: 2009Q2

REPORT INFORMATION
  Report Type: 
  Country: None (occurrence: None)
  Receive Date: 20090622
  Receipt Date: 20090622
  Transmission Date: 20091009
  Serious: Yes (Hospitalization)
  Sender: FDA-Public Use
  Company Number: None

PATIENT
  Sex: Male
  Weight: 85 kg

DRUGS (7)
  1. CEFDINIR [Suspect]
     Indication: PLEURAL EFFUSION
     Dosage: 300 MG ONCE DAILY PO
     Route: 048
     Dates: start: 20090411, end: 20090418
  2. PREDNISONE TAB [Concomitant]
  3. BACTRIM DS [Concomitant]
  4. AMLODIPINE [Concomitant]
  5. SEVELAMER [Concomitant]
  6. POSACONAZOLE [Concomitant]
  7. AMITRIPTYLINE [Concomitant]

REACTIONS (7)
  - ALANINE AMINOTRANSFERASE INCREASED [None]
  - ASPARTATE AMINOTRANSFERASE INCREASED [None]
  - BLOOD ALKALINE PHOSPHATASE INCREASED [None]
  - CONFUSIONAL STATE [None]
  - HEPATOTOXICITY [None]
  - JAUNDICE [None]
  - LETHARGY [None]
